FAERS Safety Report 6119617-1 (Version None)
Quarter: 2009Q1

REPORT INFORMATION
  Report Type: 
  Country: None (occurrence: None)
  Receive Date: 20090316
  Receipt Date: 20090304
  Transmission Date: 20090719
  Serious: Yes (Hospitalization)
  Sender: FDA-Public Use
  Company Number: US-BIOGENIDEC-2008BI027325

PATIENT
  Age: 42 Year
  Sex: Female

DRUGS (4)
  1. AVONEX [Suspect]
     Indication: MULTIPLE SCLEROSIS
     Route: 030
     Dates: start: 20070501, end: 20080603
  2. AZAR [Concomitant]
     Indication: DRUG USE FOR UNKNOWN INDICATION
  3. CORGARD [Concomitant]
     Indication: DRUG USE FOR UNKNOWN INDICATION
  4. LYRICA [Concomitant]
     Indication: DRUG USE FOR UNKNOWN INDICATION

REACTIONS (31)
  - ANXIETY [None]
  - BURNING SENSATION [None]
  - CLUMSINESS [None]
  - CONFUSIONAL STATE [None]
  - CONSTIPATION [None]
  - COORDINATION ABNORMAL [None]
  - DEPRESSION [None]
  - DISTURBANCE IN ATTENTION [None]
  - DIZZINESS [None]
  - DROOLING [None]
  - DYSPEPSIA [None]
  - FEELING HOT [None]
  - FIBROMYALGIA [None]
  - HEADACHE [None]
  - HYPERTENSION [None]
  - HYPOAESTHESIA [None]
  - INFECTED CYST [None]
  - LIBIDO DECREASED [None]
  - MEMORY IMPAIRMENT [None]
  - MIGRAINE [None]
  - MUSCULOSKELETAL DISORDER [None]
  - MUSCULOSKELETAL STIFFNESS [None]
  - MYALGIA [None]
  - PAIN [None]
  - PAIN IN EXTREMITY [None]
  - PAROSMIA [None]
  - PERSONALITY CHANGE [None]
  - SCHIZOPHRENIFORM DISORDER [None]
  - SEXUAL DYSFUNCTION [None]
  - VERTIGO [None]
  - VISUAL IMPAIRMENT [None]
